FAERS Safety Report 8186637-5 (Version None)
Quarter: 2012Q1

REPORT INFORMATION
  Report Type: 
  Country: None (occurrence: None)
  Receive Date: 20120306
  Receipt Date: 20120224
  Transmission Date: 20120608
  Serious: Yes (Other)
  Sender: FDA-Public Use
  Company Number: IT-JNJFOC-20120213042

PATIENT

DRUGS (4)
  1. CISPLATIN [Suspect]
     Indication: MESOTHELIOMA
     Dosage: 43 MG/L OF PERFUSATE
     Route: 065
  2. CISPLATIN [Suspect]
     Indication: OVARIAN CANCER
     Dosage: 43 MG/L OF PERFUSATE
     Route: 065
  3. DOXORUBICIN HCL [Suspect]
     Indication: MESOTHELIOMA
     Dosage: 15.25 MG/L OF PERFUSATE
     Route: 042
  4. DOXORUBICIN HCL [Suspect]
     Indication: OVARIAN CANCER
     Dosage: 15.25 MG/L OF PERFUSATE
     Route: 042

REACTIONS (4)
  - RENAL FAILURE [None]
  - BONE MARROW FAILURE [None]
  - NEUTROPENIC INFECTION [None]
  - PULMONARY TOXICITY [None]
